FAERS Safety Report 8558583-6 (Version None)
Quarter: 2012Q3

REPORT INFORMATION
  Report Type: 
  Country: None (occurrence: None)
  Receive Date: 20120801
  Receipt Date: 20111026
  Transmission Date: 20120928
  Serious: No
  Sender: FDA-Public Use
  Company Number: US-COVIDIEN/TYCO HEALTHCARE/MALLINCKRODT-T201102992

PATIENT
  Sex: Female
  Weight: 57 kg

DRUGS (3)
  1. HEXABRIX [Suspect]
     Indication: ARTHROGRAM
     Dosage: UNK UNK, SINGLE
     Route: 014
     Dates: start: 20111025, end: 20111025
  2. OPTIMARK [Suspect]
     Indication: ARTHROGRAM
     Dosage: 5 ML, SINGLE
     Route: 014
     Dates: start: 20111025, end: 20111025
  3. SODIUM CHLORIDE [Suspect]
     Indication: ARTHROGRAM
     Dosage: 12 ML, SINGLE
     Route: 014
     Dates: start: 20111025, end: 20111025

REACTIONS (3)
  - PRURITUS [None]
  - DYSPHAGIA [None]
  - URTICARIA [None]
